FAERS Safety Report 9081831 (Version 1)
Quarter: 2013Q1

REPORT INFORMATION
  Report Type: Spontaneous
  Country: US (occurrence: US)
  Receive Date: 20130130
  Receipt Date: 20130130
  Transmission Date: 20140127
  Serious: Yes (Other)
  Sender: FDA-Public Use
  Company Number: PHHY2013US006509

PATIENT
  Sex: Male

DRUGS (2)
  1. METHADONE [Suspect]
     Dosage: 39 UG, Q6H
  2. METHADONE [Suspect]
     Dosage: 7.8 MG, UNK

REACTIONS (5)
  - Clonus [Recovered/Resolved]
  - Neonatal respiratory depression [Recovered/Resolved]
  - Hypoxia [Recovered/Resolved]
  - Overdose [Recovered/Resolved]
  - Drug administration error [Unknown]
